FAERS Safety Report 18941290 (Version 1)
Quarter: 2021Q1

REPORT INFORMATION
  Report Type: Spontaneous
  Country: BE (occurrence: BE)
  Receive Date: 20210225
  Receipt Date: 20210225
  Transmission Date: 20210420
  Serious: Yes (Other)
  Sender: FDA-Public Use
  Company Number: BE-TEVA-2021-BE-1883264

PATIENT
  Sex: Female

DRUGS (1)
  1. OXALIPATINE TEVA [Suspect]
     Active Substance: OXALIPLATIN
     Route: 065

REACTIONS (4)
  - Pharyngeal swelling [Unknown]
  - Dysphonia [Unknown]
  - Myalgia [Unknown]
  - Hypersensitivity [Unknown]
